FAERS Safety Report 8201802-6 (Version None)
Quarter: 2012Q1

REPORT INFORMATION
  Report Type: 
  Country: None (occurrence: None)
  Receive Date: 20120312
  Receipt Date: 20120305
  Transmission Date: 20120608
  Serious: Yes (Life-Threatening, Other)
  Sender: FDA-Public Use
  Company Number: US-ROXANE LABORATORIES, INC.-2012-RO-00785RO

PATIENT
  Age: 60 Year
  Sex: Male

DRUGS (2)
  1. NALOXONE [Suspect]
     Indication: TOXICITY TO VARIOUS AGENTS
     Route: 042
  2. METHADON HCL TAB [Suspect]
     Indication: DRUG ABUSER

REACTIONS (4)
  - TOXICITY TO VARIOUS AGENTS [None]
  - STRESS CARDIOMYOPATHY [None]
  - DRUG WITHDRAWAL SYNDROME [None]
  - ACCIDENTAL OVERDOSE [None]
